FAERS Safety Report 16562444 (Version 2)
Quarter: 2019Q4

REPORT INFORMATION
  Report Type: Spontaneous
  Country: US (occurrence: US)
  Receive Date: 20190711
  Receipt Date: 20191107
  Transmission Date: 20200122
  Serious: No
  Sender: FDA-Public Use
  Company Number: US-ACTELION-A-US2019-188193

PATIENT
  Sex: Female
  Weight: 95.24 kg

DRUGS (1)
  1. OPSUMIT [Suspect]
     Active Substance: MACITENTAN
     Indication: PULMONARY ARTERIAL HYPERTENSION
     Dosage: 10 MG, QD
     Route: 048

REACTIONS (5)
  - Blood potassium decreased [Unknown]
  - Dyspnoea [Unknown]
  - Swelling [Unknown]
  - Hospice care [Unknown]
  - Nasal congestion [Unknown]
